FAERS Safety Report 21722340 (Version 2)
Quarter: 2022Q4

REPORT INFORMATION
  Report Type: Spontaneous
  Country: US (occurrence: US)
  Receive Date: 20221213
  Receipt Date: 20221216
  Transmission Date: 20230113
  Serious: Yes (Other)
  Sender: FDA-Public Use
  Company Number: US-PFIZER INC-PV202200120421

PATIENT
  Age: 76 Year
  Sex: Female

DRUGS (1)
  1. IBRANCE [Suspect]
     Active Substance: PALBOCICLIB
     Dosage: 75 MG

REACTIONS (8)
  - Second primary malignancy [Unknown]
  - Skin cancer [Unknown]
  - Ovarian neoplasm [Unknown]
  - Neoplasm [Unknown]
  - Fatigue [Unknown]
  - Insomnia [Unknown]
  - Pain [Unknown]
  - Sleep disorder [Unknown]

NARRATIVE: CASE EVENT DATE: 20190101
